FAERS Safety Report 4850448-6 (Version None)
Quarter: 2005Q4

REPORT INFORMATION
  Report Type: 
  Country: None (occurrence: None)
  Receive Date: 20051207
  Receipt Date: 20051207
  Transmission Date: 20060501
  Serious: Yes (Hospitalization)
  Sender: FDA-Public Use
  Company Number: None

PATIENT
  Age: 57 Year
  Sex: Male
  Weight: 60 kg

DRUGS (10)
  1. DILANTIN [Suspect]
     Indication: CONVULSION
     Dosage: 300MG PO BID
     Route: 048
  2. APAP TAB [Concomitant]
  3. MVI W/ MINERALS [Concomitant]
  4. SUDAFED 12 HOUR [Concomitant]
  5. FLUNISOLIDE [Concomitant]
  6. TRAZODONE HCL [Concomitant]
  7. IBUPROFEN [Concomitant]
  8. LACTASE [Concomitant]
  9. GABAPENTIN [Concomitant]
  10. ALBUTEROL [Concomitant]

REACTIONS (8)
  - ABNORMAL BEHAVIOUR [None]
  - ABNORMAL DREAMS [None]
  - DEPRESSION [None]
  - FLASHBACK [None]
  - HYPEREXPLEXIA [None]
  - NIGHT SWEATS [None]
  - POST-TRAUMATIC STRESS DISORDER [None]
  - SLEEP DISORDER [None]
